FAERS Safety Report 18805929 (Version 1)
Quarter: 2021Q1

REPORT INFORMATION
  Report Type: Other
  Country: PL (occurrence: PL)
  Receive Date: 20210129
  Receipt Date: 20210129
  Transmission Date: 20210419
  Serious: Yes (Other)
  Sender: FDA-Public Use
  Company Number: PL-FDC LIMITED-2106010

PATIENT
  Age: 86 Year
  Sex: Female

DRUGS (6)
  1. CIPROFLOXACIN. [Suspect]
     Active Substance: CIPROFLOXACIN
     Indication: PRODUCT USED FOR UNKNOWN INDICATION
     Route: 065
  2. IMIPENEM AND CILASTATIN [Suspect]
     Active Substance: CILASTATIN SODIUM\IMIPENEM
     Route: 065
  3. PIPERACILLIN. [Suspect]
     Active Substance: PIPERACILLIN SODIUM
     Route: 065
  4. TAZOBACTAM [Suspect]
     Active Substance: TAZOBACTAM
     Route: 065
  5. LOPINAVIR [Suspect]
     Active Substance: LOPINAVIR
     Route: 065
  6. RITONAVIR. [Suspect]
     Active Substance: RITONAVIR
     Route: 065

REACTIONS (9)
  - Clostridium difficile infection [Unknown]
  - Abscess [Unknown]
  - Dermatitis exfoliative [Recovered/Resolved]
  - Erythema [Recovered/Resolved]
  - Diarrhoea [Unknown]
  - Macule [Recovered/Resolved]
  - Skin atrophy [Unknown]
  - Eczema [Unknown]
  - Skin oedema [Unknown]

NARRATIVE: CASE EVENT DATE: 20200510
